FAERS Safety Report 6032914-3 (Version None)
Quarter: 2009Q1

REPORT INFORMATION
  Report Type: 
  Country: None (occurrence: None)
  Receive Date: 20090107
  Receipt Date: 20090107
  Transmission Date: 20090719
  Serious: Yes (Hospitalization)
  Sender: FDA-Public Use
  Company Number: None

PATIENT
  Age: 38 Year
  Sex: Male
  Weight: 127.1 kg

DRUGS (1)
  1. CITALOPRAM HYDROBROMIDE [Suspect]
     Indication: SCHIZOPHRENIA
     Dosage: 20 MG DAILY PO
     Route: 048

REACTIONS (3)
  - CLONUS [None]
  - EYE DISORDER [None]
  - NEUROLEPTIC MALIGNANT SYNDROME [None]
